FAERS Safety Report 16306654 (Version 2)
Quarter: 2021Q1

REPORT INFORMATION
  Report Type: Spontaneous
  Country: US (occurrence: US)
  Receive Date: 20190513
  Receipt Date: 20210217
  Transmission Date: 20210419
  Serious: Yes (Other)
  Sender: FDA-Public Use
  Company Number: US-ASTRAZENECA-2019SE65335

PATIENT
  Age: 64 Year
  Sex: Male
  Weight: 95.7 kg

DRUGS (72)
  1. SITAGLIPTIN [Concomitant]
     Active Substance: SITAGLIPTIN
  2. SENSIPAR [Concomitant]
     Active Substance: CINACALCET HYDROCHLORIDE
  3. CLONIDINE HCL [Concomitant]
     Active Substance: CLONIDINE HYDROCHLORIDE
  4. FUROSEMIDE. [Concomitant]
     Active Substance: FUROSEMIDE
  5. AMOXICILLIN. [Concomitant]
     Active Substance: AMOXICILLIN
  6. NOVOLOG [Concomitant]
     Active Substance: INSULIN ASPART
  7. TOBRAMYCIN AND DEXAMETHASONE [Concomitant]
     Active Substance: DEXAMETHASONE\TOBRAMYCIN
  8. VIGAMOX [Concomitant]
     Active Substance: MOXIFLOXACIN HYDROCHLORIDE
  9. NASONEX [Concomitant]
     Active Substance: MOMETASONE FUROATE
  10. AZITHROMYCIN ANHYDROUS. [Concomitant]
     Active Substance: AZITHROMYCIN ANHYDROUS
  11. OLMESARTAN [Concomitant]
     Active Substance: OLMESARTAN
  12. POLYETHYLENE GLYCOL [Concomitant]
     Active Substance: POLYETHYLENE GLYCOLS
  13. PRAVASTATIN. [Concomitant]
     Active Substance: PRAVASTATIN
  14. HYDROXYZINE HCL [Concomitant]
     Active Substance: HYDROXYZINE HYDROCHLORIDE
  15. AMLODIPINE BESYLATE. [Concomitant]
     Active Substance: AMLODIPINE BESYLATE
  16. ULORIC [Concomitant]
     Active Substance: FEBUXOSTAT
  17. CYCLOBENZAPRINE. [Concomitant]
     Active Substance: CYCLOBENZAPRINE
  18. GEMFIBROZIL. [Concomitant]
     Active Substance: GEMFIBROZIL
  19. AZOR [Concomitant]
     Active Substance: AMLODIPINE BESYLATE\OLMESARTAN MEDOXOMIL
  20. ROBAFEN [Concomitant]
     Active Substance: DEXTROMETHORPHAN HYDROBROMIDE\GUAIFENESIN
  21. ALBUTEROL. [Concomitant]
     Active Substance: ALBUTEROL
  22. LORATADINE. [Concomitant]
     Active Substance: LORATADINE
  23. NEXIUM [Suspect]
     Active Substance: ESOMEPRAZOLE MAGNESIUM
     Indication: GASTROOESOPHAGEAL REFLUX DISEASE
     Route: 048
     Dates: start: 201301, end: 201410
  24. FAMOTIDINE. [Concomitant]
     Active Substance: FAMOTIDINE
  25. PEPCID [Concomitant]
     Active Substance: FAMOTIDINE
  26. METFORMIN [Concomitant]
     Active Substance: METFORMIN HYDROCHLORIDE
  27. PRAVASTATIN SODIUM. [Concomitant]
     Active Substance: PRAVASTATIN SODIUM
  28. HYDROXYZINE [Concomitant]
     Active Substance: HYDROXYZINE HYDROCHLORIDE
  29. SPIRONOLACTON [Concomitant]
     Active Substance: SPIRONOLACTONE
  30. ERYTHROMYCIN. [Concomitant]
     Active Substance: ERYTHROMYCIN
  31. BENZONATATE. [Concomitant]
     Active Substance: BENZONATATE
  32. ROSUVASTATIN. [Concomitant]
     Active Substance: ROSUVASTATIN
  33. IBUPROFEN. [Concomitant]
     Active Substance: IBUPROFEN
     Indication: ABDOMINAL DISCOMFORT
  34. VANCOMYCIN [Concomitant]
     Active Substance: VANCOMYCIN
  35. CARVEDILOL. [Concomitant]
     Active Substance: CARVEDILOL
  36. PROMETHAZINE [Concomitant]
     Active Substance: PROMETHAZINE HYDROCHLORIDE
  37. AMLODIPINE [Concomitant]
     Active Substance: AMLODIPINE BESYLATE
  38. ALLOPURINOL. [Concomitant]
     Active Substance: ALLOPURINOL
  39. SODIUM POLYSTYRENE SULF [Concomitant]
  40. GLIMEPIRIDE. [Concomitant]
     Active Substance: GLIMEPIRIDE
  41. ALKA?SELTZER [Concomitant]
     Active Substance: ANHYDROUS CITRIC ACID\ASPIRIN\SODIUM BICARBONATE
  42. AMLODIPINE [Concomitant]
     Active Substance: AMLODIPINE BESYLATE
  43. CARVEDILOL. [Concomitant]
     Active Substance: CARVEDILOL
  44. FEBUXOSTAT. [Concomitant]
     Active Substance: FEBUXOSTAT
  45. INSULIN ASPART [Concomitant]
     Active Substance: INSULIN ASPART
  46. TIZANIDINE HCL [Concomitant]
     Active Substance: TIZANIDINE HYDROCHLORIDE
  47. METHOCARBAMOL. [Concomitant]
     Active Substance: METHOCARBAMOL
  48. NEXIUM [Suspect]
     Active Substance: ESOMEPRAZOLE MAGNESIUM
     Indication: GASTROOESOPHAGEAL REFLUX DISEASE
     Route: 048
     Dates: start: 20130128, end: 20141005
  49. CLONIDINE. [Concomitant]
     Active Substance: CLONIDINE
  50. PRAVASTATIN. [Concomitant]
     Active Substance: PRAVASTATIN
  51. LISINOPRIL. [Concomitant]
     Active Substance: LISINOPRIL
  52. ALLOPURINOL. [Concomitant]
     Active Substance: ALLOPURINOL
  53. AMMONIUM LACTATE. [Concomitant]
     Active Substance: AMMONIUM LACTATE
  54. PROMETHAZINE CODEINE [Concomitant]
     Active Substance: CODEINE\PROMETHAZINE
  55. CLONIDINE. [Concomitant]
     Active Substance: CLONIDINE
  56. CARVEDILOL. [Concomitant]
     Active Substance: CARVEDILOL
  57. BENICAR [Concomitant]
     Active Substance: OLMESARTAN MEDOXOMIL
  58. JANUVIA [Concomitant]
     Active Substance: SITAGLIPTIN PHOSPHATE
  59. LATANOPROST. [Concomitant]
     Active Substance: LATANOPROST
  60. PROMETHAZINE [Concomitant]
     Active Substance: PROMETHAZINE HYDROCHLORIDE
  61. AZELASTINE. [Concomitant]
     Active Substance: AZELASTINE HYDROCHLORIDE
  62. TIZANIDINE. [Concomitant]
     Active Substance: TIZANIDINE
  63. FLUOCINONIDE. [Concomitant]
     Active Substance: FLUOCINONIDE
  64. HYDROCORTISON [Concomitant]
     Active Substance: HYDROCORTISONE
  65. OXYCODONE ACETAMINOPHEN [Concomitant]
     Active Substance: ACETAMINOPHEN\OXYCODONE HYDROCHLORIDE
  66. NITROGLYCERIN. [Concomitant]
     Active Substance: NITROGLYCERIN
  67. GEMFIBROZIL. [Concomitant]
     Active Substance: GEMFIBROZIL
  68. RANITIDINE. [Concomitant]
     Active Substance: RANITIDINE
  69. AMOXICILLIN. [Concomitant]
     Active Substance: AMOXICILLIN
  70. ASPIRIN. [Concomitant]
     Active Substance: ASPIRIN
     Indication: ABDOMINAL DISCOMFORT
  71. FUROSEMIDE. [Concomitant]
     Active Substance: FUROSEMIDE
  72. HYDRALAZINE [Concomitant]
     Active Substance: HYDRALAZINE HYDROCHLORIDE

REACTIONS (5)
  - Chronic kidney disease [Not Recovered/Not Resolved]
  - Nephrogenic anaemia [Unknown]
  - Renal failure [Unknown]
  - Acute kidney injury [Unknown]
  - End stage renal disease [Unknown]

NARRATIVE: CASE EVENT DATE: 2014
